FAERS Safety Report 8260136-4 (Version None)
Quarter: 2012Q2

REPORT INFORMATION
  Report Type: 
  Country: None (occurrence: None)
  Receive Date: 20120404
  Receipt Date: 20120402
  Transmission Date: 20120825
  Serious: No
  Sender: FDA-Public Use
  Company Number: US-PFIZER INC-2012084633

PATIENT
  Sex: Female
  Weight: 47.166 kg

DRUGS (1)
  1. CHANTIX [Suspect]
     Indication: SMOKING CESSATION THERAPY
     Dosage: UNK
     Dates: start: 20110401, end: 20110101

REACTIONS (2)
  - ABDOMINAL PAIN UPPER [None]
  - MALAISE [None]
